FAERS Safety Report 21986392 (Version 1)
Quarter: 2023Q1

REPORT INFORMATION
  Report Type: Spontaneous
  Country: PT (occurrence: PT)
  Receive Date: 20230213
  Receipt Date: 20230213
  Transmission Date: 20230418
  Serious: Yes (Disabling)
  Sender: FDA-Public Use
  Company Number: None

PATIENT
  Age: 76 Year
  Sex: Female

DRUGS (3)
  1. PROPOFOL [Suspect]
     Active Substance: PROPOFOL
     Indication: Anaesthesia
     Route: 065
     Dates: start: 20230130, end: 20230130
  2. BRIVUDINE [Suspect]
     Active Substance: BRIVUDINE
     Indication: Herpes zoster
     Dosage: 125MG?1 TABLET PER DAY, 7 DAYS IN A ROW (DOSE AS PER INITIAL PRESCRIPTION)
     Route: 048
     Dates: start: 20230108, end: 20230114
  3. PLENVU [Concomitant]
     Active Substance: ASCORBIC ACID\POLYETHYLENE GLYCOL 3350\POTASSIUM CHLORIDE\SODIUM ASCORBATE\SODIUM CHLORIDE\SODIUM SU
     Indication: Colonoscopy
     Dosage: ADMINISTERED  AS  PRESCRIBED  PRIOR  TO  THE  ONSET  OF  ADR  (NO  MORE  DETAILED INFORMATION)
     Route: 048
     Dates: end: 20230130

REACTIONS (4)
  - Balance disorder [Recovered/Resolved]
  - Gait disturbance [Recovered/Resolved]
  - Drug interaction [Recovered/Resolved]
  - Dizziness [Recovered/Resolved]

NARRATIVE: CASE EVENT DATE: 20230130
